FAERS Safety Report 9779252 (Version 1)
Quarter: 2013Q4

REPORT INFORMATION
  Report Type: Spontaneous
  Country: IT (occurrence: IT)
  Receive Date: 20131223
  Receipt Date: 20131223
  Transmission Date: 20140711
  Serious: Yes (Hospitalization)
  Sender: FDA-Public Use
  Company Number: IT-ASTRAZENECA-2013SE92026

PATIENT
  Age: 26753 Day
  Sex: Male

DRUGS (2)
  1. CASODEX [Suspect]
     Indication: PROSTATE CANCER
     Route: 048
     Dates: start: 20130204, end: 20131104
  2. ENANTONE [Suspect]
     Indication: PROSTATE CANCER
     Dosage: 3.75 MG/ML POWDER AND SOLVENT FOR INJECTION SUSPESION, 1 DF MONTHLY
     Route: 058
     Dates: start: 20131011, end: 20131111

REACTIONS (1)
  - Cardiac failure [Recovering/Resolving]
